FAERS Safety Report 10390305 (Version 2)
Quarter: 2014Q3

REPORT INFORMATION
  Report Type: Report from Study
  Country: US (occurrence: US)
  Receive Date: 20140818
  Receipt Date: 20140818
  Transmission Date: 20150326
  Serious: Yes (Hospitalization, Other)
  Sender: FDA-Public Use
  Company Number: US-BAYER-2014-101480

PATIENT
  Age: 46 Year
  Sex: Male

DRUGS (5)
  1. XOFIGO [Suspect]
     Active Substance: RADIUM RA-223 DICHLORIDE
     Indication: PROSTATE CANCER METASTATIC
  2. PAMIDRONATE [Concomitant]
     Active Substance: PAMIDRONATE DISODIUM
     Dosage: 90 MG, Q1MON
     Dates: start: 201311
  3. LUPRON [Concomitant]
     Active Substance: LEUPROLIDE ACETATE
     Dosage: 22.5 MG, Q3MON
     Route: 058
     Dates: start: 201308, end: 20140509
  4. XOFIGO [Suspect]
     Active Substance: RADIUM RA-223 DICHLORIDE
     Indication: HORMONE-REFRACTORY PROSTATE CANCER
     Dosage: 0.114 MCI
     Dates: start: 20140520
  5. DURAGESIC [Concomitant]
     Active Substance: FENTANYL
     Indication: PAIN
     Dosage: PATCH

REACTIONS (5)
  - Asthenia [None]
  - Dyspnoea [None]
  - Anaemia [None]
  - Bone marrow toxicity [None]
  - Weight decreased [None]

NARRATIVE: CASE EVENT DATE: 20140702
